FAERS Safety Report 5648495-X (Version None)
Quarter: 2008Q1

REPORT INFORMATION
  Report Type: 
  Country: None (occurrence: None)
  Receive Date: 20080304
  Receipt Date: 20080225
  Transmission Date: 20080703
  Serious: Yes (Hospitalization, Other)
  Sender: FDA-Public Use
  Company Number: PHBS2008BR02729

PATIENT
  Age: 26 Year
  Sex: Female
  Weight: 54 kg

DRUGS (2)
  1. DESFERAL [Suspect]
     Indication: ANAEMIA
     Dosage: 1 DF, QW
  2. INTERFERON [Concomitant]
     Indication: HEPATITIS C
     Dosage: 1 DF, QW
     Dates: start: 20070101

REACTIONS (3)
  - ANAEMIA [None]
  - HEPATITIS C [None]
  - PAIN [None]
